FAERS Safety Report 24558690 (Version 2)
Quarter: 2025Q2

REPORT INFORMATION
  Report Type: Spontaneous
  Country: US (occurrence: US)
  Receive Date: 20241029
  Receipt Date: 20250420
  Transmission Date: 20250716
  Serious: Yes (Other)
  Sender: SANOFI AVENTIS
  Company Number: US-SA-2024SA308132

PATIENT
  Age: 67 Year
  Sex: Female

DRUGS (1)
  1. DUPIXENT [Suspect]
     Active Substance: DUPILUMAB
     Indication: Nasal polyps
     Dosage: 300 MG, QOW
     Route: 058
     Dates: end: 2024

REACTIONS (12)
  - Lip and/or oral cavity cancer [Unknown]
  - Discomfort [Recovering/Resolving]
  - Sleep disorder due to a general medical condition [Recovering/Resolving]
  - Arthritis [Unknown]
  - Paraesthesia [Recovering/Resolving]
  - Dry skin [Recovering/Resolving]
  - Skin exfoliation [Recovering/Resolving]
  - Pruritus [Unknown]
  - Rash [Recovering/Resolving]
  - Injection site pain [Unknown]
  - Sinus operation [Unknown]
  - Tongue operation [Unknown]
